FAERS Safety Report 20216560 (Version 1)
Quarter: 2021Q4

REPORT INFORMATION
  Report Type: Spontaneous
  Country: GB (occurrence: GB)
  Receive Date: 20211222
  Receipt Date: 20211222
  Transmission Date: 20220303
  Serious: Yes (Death, Hospitalization, Other)
  Sender: FDA-Public Use
  Company Number: None

PATIENT

DRUGS (13)
  1. PREDNISOLONE [Suspect]
     Active Substance: PREDNISOLONE
     Indication: Epilepsy
     Dosage: UNK,VERY HIGH DOSE FOR 28 DAYS
     Route: 048
     Dates: start: 201803, end: 201803
  2. ZONISAMIDE [Suspect]
     Active Substance: ZONISAMIDE
     Indication: Epilepsy
     Dosage: 100 MG, 100MG PM 50 MG AM
     Route: 048
     Dates: start: 2017, end: 20200410
  3. ZONISAMIDE [Suspect]
     Active Substance: ZONISAMIDE
     Dosage: 50MG, 100MG PM 50 MG AM
     Route: 048
     Dates: start: 2017, end: 20200410
  4. PHENYTOIN [Suspect]
     Active Substance: PHENYTOIN
     Dosage: 100 MG, 100MG AM 200MG PM
     Route: 048
     Dates: end: 2017
  5. PHENYTOIN [Suspect]
     Active Substance: PHENYTOIN
     Dosage: 50 MG, 100MG AM 200MG PM
     Route: 048
     Dates: end: 2017
  6. BRIVIACT [Suspect]
     Active Substance: BRIVARACETAM
     Indication: Epilepsy
     Dosage: 10 MG, 15MG IN MARCH AND 10MG IN JUNE OR JULY
     Route: 048
     Dates: start: 201803, end: 201806
  7. BRIVIACT [Suspect]
     Active Substance: BRIVARACETAM
     Dosage: 15 MG, 15MG IN MARCH AND 10MG IN JUNE OR JULY
     Route: 048
     Dates: start: 201803, end: 201806
  8. KEPPRA [Suspect]
     Active Substance: LEVETIRACETAM
     Indication: Epilepsy
     Dosage: 250 MG, QD,AS ADD ON TO RUFINAMIDE
     Route: 048
  9. PERAMPANEL [Suspect]
     Active Substance: PERAMPANEL
     Indication: Epilepsy
     Dosage: UNK,I DON^T RECALL
     Route: 048
     Dates: start: 202002, end: 20200409
  10. RUFINAMIDE [Suspect]
     Active Substance: RUFINAMIDE
     Indication: Epilepsy
     Dosage: 500 MG, QD (2 DOSAGE)
     Route: 048
  11. SULTHIAME [Suspect]
     Active Substance: SULTHIAME
     Indication: Epilepsy
     Dosage: 500 MG, QD (2 DOSAGE)
     Route: 048
  12. LACOSAMIDE [Suspect]
     Active Substance: LACOSAMIDE
     Indication: Epilepsy
     Dosage: 1 DOSAGE FORM,TABLET,10MG OR 30MG NOT SURE LOW ONLY ONE TAKEN
     Route: 048
  13. CARBAMAZEPINE [Suspect]
     Active Substance: CARBAMAZEPINE

REACTIONS (17)
  - Sudden unexplained death in epilepsy [Fatal]
  - Generalised onset non-motor seizure [Unknown]
  - Seizure cluster [Unknown]
  - Postictal paralysis [Unknown]
  - Crying [Unknown]
  - Fear [Unknown]
  - Body temperature fluctuation [Unknown]
  - Atonic seizures [Unknown]
  - Emotional disorder [Unknown]
  - Aggression [Unknown]
  - Aggression [Not Recovered/Not Resolved]
  - Asthenia [Unknown]
  - Fatigue [Unknown]
  - Hallucination, auditory [Not Recovered/Not Resolved]
  - Psychotic disorder [Recovered/Resolved with Sequelae]
  - Depressed mood [Unknown]
  - Anxiety [Unknown]

NARRATIVE: CASE EVENT DATE: 20180301
